FAERS Safety Report 5961279-8 (Version None)
Quarter: 2008Q4

REPORT INFORMATION
  Report Type: 
  Country: None (occurrence: None)
  Receive Date: 20081121
  Receipt Date: 20081111
  Transmission Date: 20090506
  Serious: Yes (Hospitalization, Other)
  Sender: FDA-Public Use
  Company Number: US-AMGEN-QUU318452

PATIENT
  Sex: Female

DRUGS (1)
  1. ENBREL [Suspect]
     Indication: PSORIATIC ARTHROPATHY
     Route: 058
     Dates: start: 20030311

REACTIONS (6)
  - ANAEMIA [None]
  - BREAST SWELLING [None]
  - FLUID RETENTION [None]
  - INCREASED TENDENCY TO BRUISE [None]
  - PSORIATIC ARTHROPATHY [None]
  - RENAL IMPAIRMENT [None]
